FAERS Safety Report 6176202-3 (Version None)
Quarter: 2009Q2

REPORT INFORMATION
  Report Type: 
  Country: None (occurrence: None)
  Receive Date: 20090501
  Receipt Date: 20090424
  Transmission Date: 20091009
  Serious: Yes (Hospitalization)
  Sender: FDA-Public Use
  Company Number: A0730289A

PATIENT
  Age: 65 Year
  Sex: Female
  Weight: 113.6 kg

DRUGS (23)
  1. AVANDIA [Suspect]
     Dosage: 8MG PER DAY
     Route: 048
     Dates: start: 19990101, end: 20080701
  2. AVANDAMET [Suspect]
     Dosage: 1000MG PER DAY
     Route: 065
     Dates: start: 19990101, end: 20080701
  3. GLUCOPHAGE [Concomitant]
  4. METFORMIN HCL [Concomitant]
  5. TOPROL-XL [Concomitant]
  6. LASIX [Concomitant]
  7. CRESTOR [Concomitant]
  8. BEXTRA [Concomitant]
  9. ACETAMINOPHEN [Concomitant]
  10. ALBUTEROL [Concomitant]
  11. ASPIRIN [Concomitant]
  12. CLONIDINE [Concomitant]
  13. COUMADIN [Concomitant]
  14. LEVAQUIN [Concomitant]
  15. MELOXICAM [Concomitant]
  16. MOBIC [Concomitant]
  17. NORVASC [Concomitant]
  18. OXYCODONE WITH APAP [Concomitant]
  19. PREMARIN [Concomitant]
  20. TRIAMTERENE AND HYDROCHLOROTHIAZIDE [Concomitant]
  21. ULTRAM [Concomitant]
  22. WARFARIN [Concomitant]
  23. ZETIA [Concomitant]

REACTIONS (5)
  - CARDIAC FAILURE CONGESTIVE [None]
  - CEREBROVASCULAR ACCIDENT [None]
  - CORONARY ARTERY DISEASE [None]
  - MYOCARDIAL INFARCTION [None]
  - SLEEP APNOEA SYNDROME [None]
